FAERS Safety Report 8591804-2 (Version None)
Quarter: 2012Q3

REPORT INFORMATION
  Report Type: 
  Country: None (occurrence: None)
  Receive Date: 20120814
  Receipt Date: 20120803
  Transmission Date: 20120928
  Serious: Yes (Hospitalization, Other)
  Sender: FDA-Public Use
  Company Number: PHHY2011JP111311

PATIENT

DRUGS (4)
  1. CYCLOSPORINE [Suspect]
     Dosage: MATERNAL DOSE: 200 MGDAILY
     Route: 064
  2. APRESOLINE [Suspect]
     Indication: BLOOD PRESSURE
     Dosage: MATERNAL DOSE UNKNOWN, ORAL
     Route: 064
  3. PREDNISOLONE [Concomitant]
  4. APRESOLINE [Suspect]
     Dosage: MATERNAL DOSE 6MG, INTRAVENOUS
     Route: 064

REACTIONS (10)
  - PREMATURE BABY [None]
  - RESPIRATORY DISORDER NEONATAL [None]
  - FOETAL DISTRESS SYNDROME [None]
  - CAESAREAN SECTION [None]
  - LOW BIRTH WEIGHT BABY [None]
  - FOETAL DISORDER [None]
  - DEVELOPMENTAL DELAY [None]
  - BREECH PRESENTATION [None]
  - FOETAL GROWTH RESTRICTION [None]
  - FOETAL EXPOSURE DURING PREGNANCY [None]
